FAERS Safety Report 8315232-X (Version None)
Quarter: 2012Q2

REPORT INFORMATION
  Report Type: 
  Country: None (occurrence: None)
  Receive Date: 20120426
  Receipt Date: 20110701
  Transmission Date: 20120825
  Serious: No
  Sender: FDA-Public Use
  Company Number: US-MYLANLABS-2011S1011887

PATIENT
  Age: 71 Year
  Sex: Female
  Weight: 76.2 kg

DRUGS (13)
  1. FUROSEMIDE [Concomitant]
  2. DILTIAZEM HCL [Suspect]
     Indication: HYPERTENSION
     Route: 048
     Dates: start: 20110501
  3. SYNTHROID [Concomitant]
     Route: 048
  4. LOSARTAN POTASSIUM AND HYDROCHLOROTHIAZIDE [Concomitant]
     Route: 048
  5. DILTIAZEM HCL [Suspect]
     Indication: ATRIAL FIBRILLATION
     Route: 048
     Dates: start: 20110501
  6. ATENOLOL [Concomitant]
     Route: 048
  7. SERTRALINE HYDROCHLORIDE [Concomitant]
  8. POTASSIUM CHLORIDE [Concomitant]
     Route: 048
  9. TYLENOL (CAPLET) [Concomitant]
  10. CRESTOR [Concomitant]
     Route: 048
  11. PRILOSEC [Concomitant]
  12. DILTIAZEM HCL [Suspect]
     Indication: CARDIAC FAILURE CONGESTIVE
     Route: 048
     Dates: start: 20110501
  13. TYLENOL PM [Concomitant]

REACTIONS (4)
  - ASTHENIA [None]
  - MEDICATION RESIDUE [None]
  - DRUG INEFFECTIVE [None]
  - BLOOD PRESSURE INCREASED [None]
